FAERS Safety Report 23488259 (Version 1)
Quarter: 2024Q1

REPORT INFORMATION
  Report Type: Spontaneous
  Country: US (occurrence: None)
  Receive Date: 20240206
  Receipt Date: 20240206
  Transmission Date: 20240409
  Serious: No
  Sender: FDA-Public Use
  Company Number: None

PATIENT
  Sex: Female

DRUGS (6)
  1. XOLAIR [Suspect]
     Active Substance: OMALIZUMAB
  2. APAP/CODEINE [Concomitant]
  3. CELECOXIB CAP [Concomitant]
  4. CYCLOSPORINE [Concomitant]
  5. IBUPROFEN [Concomitant]
  6. METHOCARBAM [Concomitant]

REACTIONS (1)
  - Renal cancer [None]
